FAERS Safety Report 9814312 (Version 2)
Quarter: 2014Q1

REPORT INFORMATION
  Report Type: Spontaneous
  Country: IT (occurrence: IT)
  Receive Date: 20140113
  Receipt Date: 20140314
  Transmission Date: 20141002
  Serious: Yes (Hospitalization)
  Sender: FDA-Public Use
  Company Number: IT-TEVA-454712ISR

PATIENT
  Age: 71 Year
  Sex: Male
  Weight: 49 kg

DRUGS (5)
  1. CISPLATIN [Suspect]
     Indication: LUNG NEOPLASM MALIGNANT
     Route: 041
     Dates: start: 20130906, end: 20131108
  2. ALIMTA - 500 MG POLV. PER CONC. PER SOLUZ. PER INFUS. - ELI LILLY [Suspect]
     Indication: LUNG NEOPLASM MALIGNANT
     Dosage: 750 MILLIGRAM DAILY;
     Route: 041
     Dates: start: 20130906, end: 20131108
  3. FOLINA - 5 MG CAPSULE MOLLI [Concomitant]
     Indication: PRODUCT USED FOR UNKNOWN INDICATION
     Dosage: 5 MILLIGRAM DAILY;
     Route: 048
     Dates: start: 20130901, end: 20131122
  4. BENEXOL [Concomitant]
     Indication: PRODUCT USED FOR UNKNOWN INDICATION
     Dosage: 1 DOSAGE FORMS DAILY;
     Route: 048
     Dates: start: 20130901, end: 20131122
  5. DEXAMETHASONE [Concomitant]
     Indication: PRODUCT USED FOR UNKNOWN INDICATION
     Dosage: 8 MILLIGRAM DAILY;
     Route: 048
     Dates: start: 20130901, end: 20131122

REACTIONS (1)
  - Pancytopenia [Recovering/Resolving]
